FAERS Safety Report 9392414 (Version 1)
Quarter: 2013Q3

REPORT INFORMATION
  Report Type: Spontaneous
  Country: US (occurrence: US)
  Receive Date: 20130710
  Receipt Date: 20130710
  Transmission Date: 20140515
  Serious: Yes (Hospitalization, Other)
  Sender: FDA-Public Use
  Company Number: US-ACCORD-018388

PATIENT
  Age: 17 Year
  Sex: Female

DRUGS (4)
  1. TOPIRAMATE [Suspect]
     Indication: JUVENILE MYOCLONIC EPILEPSY
  2. LEVETIRACETAM [Suspect]
     Indication: JUVENILE MYOCLONIC EPILEPSY
  3. LORAZEPAM [Concomitant]
     Dosage: AS NEEDED
     Route: 048
  4. VALPROIC ACID [Interacting]
     Indication: JUVENILE MYOCLONIC EPILEPSY
     Dosage: 20 MG/KG/DAY; USUAL RECOMMENDED STARTING DOSE IS 10-15 MG/KG/DAY

REACTIONS (7)
  - Hyperammonaemic encephalopathy [Recovered/Resolved]
  - No therapeutic response [Unknown]
  - Hypotension [Recovered/Resolved]
  - Bradycardia [Recovered/Resolved]
  - Acidosis hyperchloraemic [Recovering/Resolving]
  - Electrocardiogram QT prolonged [Recovered/Resolved]
  - Drug interaction [Unknown]
